FAERS Safety Report 4528232-2 (Version None)
Quarter: 2004Q4

REPORT INFORMATION
  Report Type: 
  Country: None (occurrence: None)
  Receive Date: 20041130
  Receipt Date: 20040917
  Transmission Date: 20050328
  Serious: No
  Sender: FDA-Public Use
  Company Number: 702123

PATIENT
  Age: 53 Year
  Sex: Female

DRUGS (1)
  1. AMEVIVE [Suspect]
     Dates: start: 20040517, end: 20040707

REACTIONS (6)
  - CHILLS [None]
  - LYMPHADENOPATHY [None]
  - MYOPATHY [None]
  - NAUSEA [None]
  - PHARYNGITIS STREPTOCOCCAL [None]
  - SKIN BURNING SENSATION [None]
